FAERS Safety Report 5095239-9 (Version None)
Quarter: 2006Q3

REPORT INFORMATION
  Report Type: 
  Country: None (occurrence: None)
  Receive Date: 20060830
  Receipt Date: 20051025
  Transmission Date: 20061208
  Serious: Yes (Hospitalization, Other)
  Sender: FDA-Public Use
  Company Number: WW ISSUE NO.15

PATIENT
  Age: 46 Year
  Sex: Male
  Weight: 68.9467 kg

DRUGS (2)
  1. CEFAZOLIN [Suspect]
     Indication: INGUINAL HERNIA REPAIR
     Dosage: 1G, CONTINUOUS, INJ.
     Dates: start: 20050907
  2. CEFAZOLIN [Suspect]
     Indication: PREOPERATIVE CARE
     Dosage: 1G, CONTINUOUS, INJ.
     Dates: start: 20050907

REACTIONS (1)
  - HEPATITIS [None]
